FAERS Safety Report 7434790-0 (Version None)
Quarter: 2011Q2

REPORT INFORMATION
  Report Type: 
  Country: None (occurrence: None)
  Receive Date: 20110425
  Receipt Date: 20110411
  Transmission Date: 20111010
  Serious: Yes (Death, Other)
  Sender: FDA-Public Use
  Company Number: JP-AMGEN-JPNCT2010003619

PATIENT
  Age: 69 Year
  Sex: Male
  Weight: 38 kg

DRUGS (14)
  1. PACETCOOL [Suspect]
     Route: 041
     Dates: start: 20101027, end: 20101029
  2. ETODOLAC [Concomitant]
     Route: 048
  3. FLURBIPROFEN [Suspect]
     Route: 041
     Dates: start: 20101027, end: 20101027
  4. FERROUS CITRATE [Concomitant]
     Route: 048
  5. SUNRYTHM [Concomitant]
     Route: 048
  6. PANITUMUMAB [Suspect]
     Indication: COLORECTAL CANCER METASTATIC
     Dosage: 6 MG/KG, Q2WK
     Route: 041
     Dates: start: 20101008, end: 20101022
  7. OXYCONTIN [Concomitant]
     Dosage: UNK UNK, 2 TIMES/WK
     Route: 048
  8. BETAMETHASONE [Concomitant]
     Route: 048
  9. MEROPENEM [Suspect]
     Route: 041
     Dates: start: 20101029
  10. OXINORM [Concomitant]
     Indication: PAIN
     Route: 048
  11. GASLON [Concomitant]
     Route: 048
  12. GAMOFA [Concomitant]
     Route: 048
  13. PYDOXAL [Concomitant]
     Route: 048
  14. MAGMITT [Concomitant]
     Route: 048

REACTIONS (2)
  - INTERSTITIAL LUNG DISEASE [None]
  - PYREXIA [None]
